FAERS Safety Report 5163296-7 (Version None)
Quarter: 2006Q4

REPORT INFORMATION
  Report Type: 
  Country: None (occurrence: None)
  Receive Date: 20061204
  Receipt Date: 20061121
  Transmission Date: 20070319
  Serious: Yes (Hospitalization)
  Sender: FDA-Public Use
  Company Number: US-JNJFOC-20061105462

PATIENT

DRUGS (4)
  1. ACETAMINOPHEN [Suspect]
  2. ACETAMINOPHEN [Suspect]
     Indication: SUICIDE ATTEMPT
  3. METHOTREXATE [Suspect]
     Indication: SUICIDE ATTEMPT
  4. VALPROATE SODIUM [Suspect]
     Indication: SUICIDE ATTEMPT

REACTIONS (2)
  - HEPATOTOXICITY [None]
  - MULTIPLE DRUG OVERDOSE [None]
